FAERS Safety Report 7691081-0 (Version None)
Quarter: 2011Q3

REPORT INFORMATION
  Report Type: 
  Country: None (occurrence: None)
  Receive Date: 20110817
  Receipt Date: 20110817
  Transmission Date: 20111222
  Serious: Yes (Hospitalization)
  Sender: FDA-Public Use
  Company Number: None

PATIENT
  Age: 49 Year
  Sex: Male

DRUGS (2)
  1. REVLIMID [Suspect]
     Indication: MYELODYSPLASTIC SYNDROME
     Dosage: REVLIMID 10 MG DAILY ORALLY
     Route: 048
     Dates: start: 20110707, end: 20110713
  2. MORPHINE [Concomitant]

REACTIONS (8)
  - NAUSEA [None]
  - CONDITION AGGRAVATED [None]
  - OROPHARYNGEAL PAIN [None]
  - PANCYTOPENIA [None]
  - COUGH [None]
  - PYREXIA [None]
  - NO THERAPEUTIC RESPONSE [None]
  - INFECTION [None]
